FAERS Safety Report 7625808-0 (Version None)
Quarter: 2011Q3

REPORT INFORMATION
  Report Type: 
  Country: None (occurrence: None)
  Receive Date: 20110721
  Receipt Date: 20110711
  Transmission Date: 20111222
  Serious: Yes (Other)
  Sender: FDA-Public Use
  Company Number: AU-ELI_LILLY_AND_COMPANY-AU201107002872

PATIENT
  Age: 68 Year
  Sex: Male

DRUGS (5)
  1. CIALIS [Suspect]
     Dosage: 20 MG, UNK
  2. METFORMIN [Concomitant]
  3. PERINDOPRIL ERBUMINE [Concomitant]
  4. MINIPRESS [Concomitant]
  5. INSULIN [Concomitant]

REACTIONS (10)
  - MUSCLE SPASMS [None]
  - INTENTIONAL DRUG MISUSE [None]
  - LOSS OF CONSCIOUSNESS [None]
  - HEAD INJURY [None]
  - VOMITING [None]
  - OESOPHAGEAL PAIN [None]
  - BLOOD GLUCOSE INCREASED [None]
  - HAEMORRHAGE [None]
  - HEADACHE [None]
  - BLOOD GLUCOSE DECREASED [None]
